FAERS Safety Report 11922708 (Version 3)
Quarter: 2016Q1

REPORT INFORMATION
  Report Type: Spontaneous
  Country: US (occurrence: US)
  Receive Date: 20160115
  Receipt Date: 20160227
  Transmission Date: 20160526
  Serious: Yes (Other)
  Sender: FDA-Public Use
  Company Number: US-BRISTOL-MYERS SQUIBB COMPANY-BMS-2016-001055

PATIENT
  Sex: Male
  Weight: 99.77 kg

DRUGS (3)
  1. ELIQUIS [Suspect]
     Active Substance: APIXABAN
     Indication: PRODUCT USED FOR UNKNOWN INDICATION
     Dosage: 5 MG, BID
     Route: 048
     Dates: start: 20151008
  2. INSULIN                            /00646001/ [Concomitant]
     Active Substance: INSULIN NOS
     Indication: PRODUCT USED FOR UNKNOWN INDICATION
     Route: 065
  3. ELIQUIS [Suspect]
     Active Substance: APIXABAN
     Dosage: 2.5 MG, UNK
     Route: 048

REACTIONS (17)
  - Heart rate irregular [Unknown]
  - Malaise [Unknown]
  - Off label use [Unknown]
  - Gastrointestinal pain [Unknown]
  - Wheezing [Unknown]
  - Fall [Unknown]
  - Haematochezia [Unknown]
  - Headache [Unknown]
  - Myalgia [Unknown]
  - Spinal column stenosis [Unknown]
  - Blood glucose decreased [Unknown]
  - Pain [Unknown]
  - Diarrhoea [Unknown]
  - Asthenia [Unknown]
  - White blood cell count increased [Unknown]
  - Abdominal distension [Unknown]
  - Decreased appetite [Unknown]
